FAERS Safety Report 14516249 (Version 1)
Quarter: 2018Q1

REPORT INFORMATION
  Report Type: Spontaneous
  Country: US (occurrence: US)
  Receive Date: 20180211
  Receipt Date: 20180211
  Transmission Date: 20180509
  Serious: Yes (Other)
  Sender: FDA-Public Use
  Company Number: PHEH2018US004550

PATIENT
  Sex: Female

DRUGS (3)
  1. EFFEXOR [Concomitant]
     Active Substance: VENLAFAXINE HYDROCHLORIDE
     Indication: DEPRESSION
     Route: 065
  2. AFINITOR [Suspect]
     Active Substance: EVEROLIMUS
     Indication: CARCINOID SYNDROME
     Route: 065
  3. XERAMELO (ERYTHROMYCIN ESTOLATE) [Suspect]
     Active Substance: ERYTHROMYCIN ESTOLATE
     Indication: CARCINOID SYNDROME
     Dosage: 250 MG, TID
     Route: 048

REACTIONS (8)
  - Burning sensation [Unknown]
  - Paraesthesia [Unknown]
  - Oedema [Recovering/Resolving]
  - Pain in extremity [Not Recovered/Not Resolved]
  - Skin discolouration [Unknown]
  - Dizziness [Unknown]
  - Product use in unapproved indication [Unknown]
  - Vitamin B complex deficiency [Unknown]
